FAERS Safety Report 4380540-4 (Version None)
Quarter: 2004Q2

REPORT INFORMATION
  Report Type: 
  Country: None (occurrence: None)
  Receive Date: 20040618
  Receipt Date: 20040604
  Transmission Date: 20050107
  Serious: Yes (Life-Threatening, Hospitalization)
  Sender: FDA-Public Use
  Company Number: JP-MERCK-0406USA00683

PATIENT
  Age: 74 Year
  Sex: Female

DRUGS (9)
  1. ALLOPURINOL [Concomitant]
     Indication: HYPERURICAEMIA
     Route: 065
     Dates: start: 20000713, end: 20040422
  2. BROTIZOLAM [Concomitant]
     Indication: INSOMNIA
     Route: 065
     Dates: start: 20031127
  3. DIGOXIN [Concomitant]
     Indication: ATRIAL FIBRILLATION
     Route: 065
     Dates: start: 20021118, end: 20040422
  4. DILTIAZEM HYDROCHLORIDE [Concomitant]
     Indication: HYPERTENSION
     Route: 065
     Dates: start: 20020328
  5. PEPCID [Concomitant]
     Indication: GASTRITIS
     Route: 048
     Dates: start: 20040311, end: 20040422
  6. COZAAR [Suspect]
     Indication: HYPERTENSION
     Route: 048
     Dates: start: 20040122, end: 20040422
  7. PRAVASTATIN SODIUM [Concomitant]
     Indication: HYPERLIPIDAEMIA
     Route: 065
     Dates: start: 19960105, end: 20040422
  8. ALOSENN [Concomitant]
     Indication: CONSTIPATION
     Route: 065
     Dates: start: 19990708
  9. TELMISARTAN [Concomitant]
     Route: 065

REACTIONS (3)
  - BLOOD ALKALINE PHOSPHATASE INCREASED [None]
  - BLOOD LACTATE DEHYDROGENASE INCREASED [None]
  - NEPHRITIS INTERSTITIAL [None]
